FAERS Safety Report 5828025-X (Version None)
Quarter: 2008Q3

REPORT INFORMATION
  Report Type: 
  Country: None (occurrence: None)
  Receive Date: 20080730
  Receipt Date: 20070705
  Transmission Date: 20090109
  Serious: No
  Sender: FDA-Public Use
  Company Number: A0662548A

PATIENT
  Age: 57 Year
  Sex: Female

DRUGS (2)
  1. ZANTAC [Suspect]
     Indication: DRUG USE FOR UNKNOWN INDICATION
     Route: 065
     Dates: start: 20070520
  2. MAGNESIUM HYDROXIDE+ALUMINIUM HYDROXIDE+SIMETHICONE [Suspect]
     Indication: DYSPEPSIA
     Dosage: 2TSP TWICE PER DAY
     Route: 048
     Dates: start: 20070520

REACTIONS (1)
  - DIARRHOEA [None]
